FAERS Safety Report 21363450 (Version 3)
Quarter: 2022Q4

REPORT INFORMATION
  Report Type: Report from Study
  Country: IN (occurrence: IN)
  Receive Date: 20220922
  Receipt Date: 20221003
  Transmission Date: 20230112
  Serious: Yes (Death, Life-Threatening, Hospitalization, Other)
  Sender: FDA-Public Use
  Company Number: IN-NOVARTISPH-NVSC2022IN211544

PATIENT
  Age: 0 Year
  Sex: Male
  Weight: 7 kg

DRUGS (7)
  1. ZOLGENSMA [Suspect]
     Active Substance: ONASEMNOGENE ABEPARVOVEC-XIOI
     Indication: Spinal muscular atrophy
     Dosage: 38.5 ML, ONCE/SINGLE (ONCE IN LIFETIME)
     Route: 042
     Dates: start: 20220917
  2. PREDNISOLONE [Concomitant]
     Active Substance: PREDNISOLONE
     Indication: Product used for unknown indication
     Dosage: 1 MG/KG
     Route: 065
     Dates: start: 20220916
  3. OSELTAMIVIR [Concomitant]
     Active Substance: OSELTAMIVIR
     Indication: Infection
     Dosage: 2.5 MG, BID
     Route: 065
     Dates: start: 20220918
  4. AUGMENTIN [Concomitant]
     Active Substance: AMOXICILLIN\CLAVULANATE POTASSIUM
     Indication: Infection
     Dosage: 100 MG/KG, QD
     Route: 042
     Dates: start: 20220918
  5. CEFTRIAXONE [Concomitant]
     Active Substance: CEFTRIAXONE
     Indication: Product used for unknown indication
     Dosage: 100 MG/KG, QD (TWICE A DAY)
     Route: 042
     Dates: start: 20220920
  6. ACETAMINOPHEN [Concomitant]
     Active Substance: ACETAMINOPHEN
     Indication: Product used for unknown indication
     Dosage: UNK
     Route: 065
  7. DNS [Concomitant]
     Indication: Product used for unknown indication
     Dosage: UNK
     Route: 065
     Dates: start: 20220918

REACTIONS (12)
  - Death [Fatal]
  - Respiratory syncytial virus bronchiolitis [Unknown]
  - Respiratory distress [Not Recovered/Not Resolved]
  - Respiratory rate increased [Unknown]
  - Nasal flaring [Unknown]
  - Dyspnoea [Recovering/Resolving]
  - Oxygen saturation decreased [Unknown]
  - Use of accessory respiratory muscles [Unknown]
  - General physical health deterioration [Unknown]
  - Pyrexia [Recovering/Resolving]
  - Hypoxia [Unknown]
  - Pneumonic plague [Unknown]

NARRATIVE: CASE EVENT DATE: 20220917
